FAERS Safety Report 19459019 (Version 2)
Quarter: 2021Q2

REPORT INFORMATION
  Report Type: Spontaneous
  Country: US (occurrence: US)
  Receive Date: 20210624
  Receipt Date: 20210629
  Transmission Date: 20210717
  Serious: No
  Sender: FDA-Public Use
  Company Number: US-SA-2021SA201027

PATIENT
  Sex: Female

DRUGS (3)
  1. NOVOLOG [Concomitant]
     Active Substance: INSULIN ASPART
     Dosage: UNK
     Route: 065
  2. LANTUS [Suspect]
     Active Substance: INSULIN GLARGINE
     Dosage: AROUND 6 TO 8 UNITS
     Route: 065
  3. LANTUS [Suspect]
     Active Substance: INSULIN GLARGINE
     Indication: DIABETES MELLITUS
     Dosage: 42 IU, QD
     Route: 065
     Dates: start: 2018

REACTIONS (4)
  - Incorrect dose administered by device [Unknown]
  - Visual impairment [Unknown]
  - Device operational issue [Unknown]
  - Blood glucose increased [Unknown]
